FAERS Safety Report 7106135-7 (Version None)
Quarter: 2010Q4

REPORT INFORMATION
  Report Type: 
  Country: None (occurrence: None)
  Receive Date: 20101116
  Receipt Date: 20101104
  Transmission Date: 20110411
  Serious: No
  Sender: FDA-Public Use
  Company Number: US-JNJFOC-20101102665

PATIENT
  Sex: Female
  Weight: 72.12 kg

DRUGS (13)
  1. SANDOZ FENTANYL TRANSDERMAL SYSTEM [Suspect]
     Indication: NEUROPATHY PERIPHERAL
     Route: 062
  2. SANDOZ FENTANYL TRANSDERMAL SYSTEM [Suspect]
     Route: 062
  3. SANDOZ FENTANYL TRANSDERMAL SYSTEM [Suspect]
     Route: 062
  4. SANDOZ FENTANYL TRANSDERMAL SYSTEM [Suspect]
     Indication: ABDOMINAL PAIN
     Route: 062
  5. SANDOZ FENTANYL TRANSDERMAL SYSTEM [Suspect]
     Route: 062
  6. SANDOZ FENTANYL TRANSDERMAL SYSTEM [Suspect]
     Route: 062
  7. SYNTHROID [Concomitant]
     Indication: THYROID DISORDER
     Route: 048
  8. PANTOPRAZOLE SODIUM [Concomitant]
     Indication: GASTRIC DISORDER
     Route: 048
  9. SIMVASTATIN [Concomitant]
     Indication: BLOOD CHOLESTEROL
     Route: 048
  10. ACYCLOVIR SODIUM [Concomitant]
     Indication: BLOOD COUNT ABNORMAL
     Route: 048
  11. OXYCODONE HCL AND ACETAMINOPHEN [Concomitant]
     Indication: BREAKTHROUGH PAIN
     Dosage: 2.5/500 MGS AS NEEDED
     Route: 048
  12. DILAUDID [Concomitant]
     Indication: BREAKTHROUGH PAIN
     Dosage: 2.5/500 MGS AS NEEDED
     Route: 048
  13. CHEMOTHERAPY [Concomitant]
     Indication: NEOPLASM MALIGNANT
     Dosage: 2.5/500 MGS AS NEEDED
     Route: 065

REACTIONS (2)
  - PAIN [None]
  - WRONG TECHNIQUE IN DRUG USAGE PROCESS [None]
